FAERS Safety Report 7747010-4 (Version None)
Quarter: 2011Q3

REPORT INFORMATION
  Report Type: 
  Country: None (occurrence: None)
  Receive Date: 20110913
  Receipt Date: 20110907
  Transmission Date: 20111222
  Serious: Yes (Other)
  Sender: FDA-Public Use
  Company Number: PHHY2011JP80350

PATIENT
  Age: 70 Year
  Sex: Male

DRUGS (2)
  1. ZOMETA [Suspect]
     Indication: METASTASES TO BONE
     Dosage: 4 MG, DAILY
     Route: 041
     Dates: start: 20110801
  2. ESTRACYT [Concomitant]
     Dosage: UNK UKN, UNK
     Route: 048
     Dates: start: 20110801

REACTIONS (2)
  - ASPARTATE AMINOTRANSFERASE INCREASED [None]
  - HEPATIC FUNCTION ABNORMAL [None]
